FAERS Safety Report 5843943-4 (Version None)
Quarter: 2008Q3

REPORT INFORMATION
  Report Type: 
  Country: None (occurrence: None)
  Receive Date: 20080808
  Receipt Date: 20080723
  Transmission Date: 20090109
  Serious: Yes (Hospitalization)
  Sender: FDA-Public Use
  Company Number: MK-6033532

PATIENT
  Age: 18 Year
  Sex: Female

DRUGS (2)
  1. CIPROFLOXACIN [Suspect]
     Indication: RHINITIS
     Dosage: 2 GM; ORAL; DAILY;
     Route: 048
  2. RIFAMPICIN [Suspect]
     Indication: RHINITIS
     Dosage: 600 MG; DAILY

REACTIONS (7)
  - ACTIVATED PARTIAL THROMBOPLASTIN TIME PROLONGED [None]
  - COAGULOPATHY [None]
  - DRUG TOXICITY [None]
  - INTERNATIONAL NORMALISED RATIO INCREASED [None]
  - NEPHRITIS INTERSTITIAL [None]
  - RENAL IMPAIRMENT [None]
  - VOMITING [None]
